FAERS Safety Report 5227688-X (Version None)
Quarter: 2007Q1

REPORT INFORMATION
  Report Type: 
  Country: None (occurrence: None)
  Receive Date: 20070202
  Receipt Date: 20070125
  Transmission Date: 20070707
  Serious: Yes (Hospitalization)
  Sender: FDA-Public Use
  Company Number: SE-ABBOTT-07P-150-0357180-00

PATIENT
  Age: 22 Year
  Sex: Female

DRUGS (3)
  1. HUMIRA [Suspect]
     Indication: ANKYLOSING SPONDYLITIS
     Route: 058
     Dates: start: 20060301, end: 20060928
  2. DIKLOFENAK SUPPOSITORY [Concomitant]
     Indication: DRUG USE FOR UNKNOWN INDICATION
     Route: 054
     Dates: end: 20060928
  3. DIKLOFENAK SUPPOSITORY [Concomitant]
     Route: 054

REACTIONS (4)
  - ANKYLOSING SPONDYLITIS [None]
  - ARTHRITIS REACTIVE [None]
  - HAEMOPHILUS INFECTION [None]
  - HEPATIC ENZYME INCREASED [None]
